FAERS Safety Report 7957071-5 (Version None)
Quarter: 2011Q4

REPORT INFORMATION
  Report Type: 
  Country: None (occurrence: None)
  Receive Date: 20111205
  Receipt Date: 20111130
  Transmission Date: 20120403
  Serious: Yes (Hospitalization)
  Sender: FDA-Public Use
  Company Number: US-VERTEX PHARMACEUTICALS INC.-AE-2011-004253

PATIENT
  Sex: Female

DRUGS (3)
  1. INCIVEK [Suspect]
     Indication: HEPATITIS C
     Route: 048
     Dates: start: 20111025, end: 20111125
  2. PEGASYS [Concomitant]
     Indication: HEPATITIS C
     Route: 058
     Dates: start: 20111025, end: 20111125
  3. RIBAVIRIN [Concomitant]
     Indication: HEPATITIS C
     Route: 048
     Dates: start: 20111025, end: 20111125

REACTIONS (6)
  - NAUSEA [None]
  - DIZZINESS [None]
  - HYPOTENSION [None]
  - BLOOD GLUCOSE DECREASED [None]
  - BLOOD COUNT ABNORMAL [None]
  - DECREASED APPETITE [None]
